FAERS Safety Report 9793462 (Version 1)
Quarter: 2014Q1

REPORT INFORMATION
  Report Type: Spontaneous
  Country: US (occurrence: US)
  Receive Date: 20140102
  Receipt Date: 20140102
  Transmission Date: 20141002
  Serious: Yes (Other)
  Sender: FDA-Public Use
  Company Number: US-BAYER-2013-158096

PATIENT
  Sex: Female

DRUGS (1)
  1. BAYER ASPIRIN REGIMEN REGULAR 325 MG STRENGTH [Suspect]
     Indication: SELF INJURIOUS BEHAVIOUR
     Dosage: 9750 MG, UNK
     Route: 048
     Dates: start: 20131223

REACTIONS (2)
  - Hearing impaired [Not Recovered/Not Resolved]
  - Intentional overdose [None]
